FAERS Safety Report 16113096 (Version 2)
Quarter: 2019Q1

REPORT INFORMATION
  Report Type: Spontaneous
  Country: MQ (occurrence: MQ)
  Receive Date: 20190325
  Receipt Date: 20190328
  Transmission Date: 20190418
  Serious: Yes (Death, Life-Threatening, Hospitalization, Other)
  Sender: FDA-Public Use
  Company Number: MQ-BRISTOL-MYERS SQUIBB COMPANY-BMS-2019-025949

PATIENT
  Age: 71 Year
  Sex: Female

DRUGS (1)
  1. NIVOLUMAB [Suspect]
     Active Substance: NIVOLUMAB
     Indication: BRONCHIOLOALVEOLAR CARCINOMA
     Dosage: 240 MILLIGRAM
     Route: 065
     Dates: start: 20190215

REACTIONS (3)
  - Lung disorder [Fatal]
  - Hepatitis [Fatal]
  - Renal disorder [Fatal]

NARRATIVE: CASE EVENT DATE: 20190222
